FAERS Safety Report 8484755-5 (Version None)
Quarter: 2012Q3

REPORT INFORMATION
  Report Type: 
  Country: None (occurrence: None)
  Receive Date: 20120703
  Receipt Date: 20120620
  Transmission Date: 20120928
  Serious: Yes (Other)
  Sender: FDA-Public Use
  Company Number: DE-ELI_LILLY_AND_COMPANY-DE201203006308

PATIENT
  Age: 79 Year
  Sex: Female

DRUGS (8)
  1. BISOPROLOL FUMARATE [Concomitant]
  2. FORTEO [Suspect]
     Indication: OSTEOPOROSIS
     Dosage: UNK, QD
     Route: 058
     Dates: start: 20110919, end: 20120608
  3. MARCUMAR [Concomitant]
  4. FORTEO [Suspect]
     Dosage: UNK, QD
     Route: 058
     Dates: start: 20120618
  5. RAMIPRIL [Concomitant]
  6. DIPYRONE TAB [Concomitant]
  7. AMLODIPINE BESYLATE [Concomitant]
  8. SIMVASTATIN [Concomitant]

REACTIONS (7)
  - FATIGUE [None]
  - NEURALGIA [None]
  - PRURITUS [None]
  - THROMBOSIS [None]
  - DIZZINESS [None]
  - RASH [None]
  - DYSPNOEA [None]
